FAERS Safety Report 6580003-1 (Version None)
Quarter: 2010Q1

REPORT INFORMATION
  Report Type: 
  Country: None (occurrence: None)
  Receive Date: 20100212
  Receipt Date: 20091117
  Transmission Date: 20100710
  Serious: Yes (Other)
  Sender: FDA-Public Use
  Company Number: JP-SANOFI-AVENTIS-2009SA004634

PATIENT
  Age: 37 Year
  Sex: Male
  Weight: 90 kg

DRUGS (9)
  1. PLAVIX [Suspect]
     Route: 048
     Dates: start: 20081004, end: 20081004
  2. PLAVIX [Suspect]
     Route: 048
     Dates: start: 20081005
  3. ASPIRIN [Concomitant]
     Route: 048
     Dates: start: 20081004
  4. HEPARIN [Concomitant]
     Dosage: DOSE:10000 UNIT(S)
     Route: 042
     Dates: start: 20081004, end: 20081008
  5. DIOVANE [Concomitant]
     Route: 048
     Dates: start: 20081005
  6. LIPITOR [Concomitant]
     Route: 048
     Dates: start: 20081005
  7. ISOSORBIDE DINITRATE [Concomitant]
     Route: 062
     Dates: start: 20081005
  8. ARTIST [Concomitant]
     Route: 048
     Dates: start: 20081005
  9. MEXITIL [Concomitant]
     Route: 048
     Dates: start: 20081005

REACTIONS (2)
  - ANAEMIA [None]
  - APPENDICITIS [None]
